FAERS Safety Report 4920427-9 (Version None)
Quarter: 2006Q1

REPORT INFORMATION
  Report Type: 
  Country: None (occurrence: None)
  Receive Date: 20060223
  Receipt Date: 20050517
  Transmission Date: 20060701
  Serious: Yes (Hospitalization)
  Sender: FDA-Public Use
  Company Number: US-MERCK-0505USA02087

PATIENT
  Age: 40 Year
  Sex: Female
  Weight: 101 kg

DRUGS (4)
  1. VIOXX [Suspect]
     Indication: BACK DISORDER
     Route: 048
     Dates: start: 20000101, end: 20040901
  2. VIOXX [Suspect]
     Indication: ARTHRITIS
     Route: 048
     Dates: start: 20000101, end: 20040901
  3. TENORMIN [Concomitant]
     Indication: HYPERTENSION
     Route: 048
  4. NORVASC [Concomitant]
     Indication: HYPERTENSION
     Route: 048

REACTIONS (21)
  - ACCIDENT [None]
  - BACK PAIN [None]
  - BRONCHITIS ACUTE [None]
  - CARDIAC FAILURE CONGESTIVE [None]
  - CHEST PAIN [None]
  - CHRONIC OBSTRUCTIVE PULMONARY DISEASE [None]
  - DEPRESSION [None]
  - DIASTOLIC DYSFUNCTION [None]
  - DIZZINESS [None]
  - FLUID OVERLOAD [None]
  - GASTRIC ULCER [None]
  - GASTRITIS [None]
  - HIDRADENITIS [None]
  - HYPERLIPIDAEMIA [None]
  - HYPERTENSION [None]
  - NEURODERMATITIS [None]
  - OEDEMA [None]
  - PANCREATITIS [None]
  - RESPIRATORY FAILURE [None]
  - SCAR [None]
  - UPPER RESPIRATORY TRACT INFECTION [None]
